FAERS Safety Report 4778083-9 (Version None)
Quarter: 2005Q3

REPORT INFORMATION
  Report Type: 
  Country: None (occurrence: None)
  Receive Date: 20050922
  Receipt Date: 20050908
  Transmission Date: 20060218
  Serious: Yes (Other)
  Sender: FDA-Public Use
  Company Number: 1781-207

PATIENT
  Age: 34 Year
  Sex: Female
  Weight: 68.9467 kg

DRUGS (1)
  1. VENOFER [Suspect]
     Indication: IRON DEFICIENCY ANAEMIA
     Dosage: 300 MG  IV X 4 WKS 06/02,06/07,06/14,
     Route: 042

REACTIONS (5)
  - ARTHRALGIA [None]
  - MYALGIA [None]
  - RAYNAUD'S PHENOMENON [None]
  - SKIN ULCER [None]
  - SYSTEMIC LUPUS ERYTHEMATOSUS [None]
